FAERS Safety Report 7418693-3 (Version None)
Quarter: 2011Q2

REPORT INFORMATION
  Report Type: 
  Country: None (occurrence: None)
  Receive Date: 20110415
  Receipt Date: 20110412
  Transmission Date: 20111010
  Serious: Yes (Hospitalization, Other)
  Sender: FDA-Public Use
  Company Number: DE-ABBOTT-11P-062-0718551-00

PATIENT
  Sex: Female

DRUGS (3)
  1. MTX [Concomitant]
     Indication: PRODUCT USED FOR UNKNOWN INDICATION
  2. DICLAC [Concomitant]
     Indication: PRODUCT USED FOR UNKNOWN INDICATION
  3. HUMIRA [Suspect]
     Indication: RHEUMATOID ARTHRITIS
     Dates: start: 20100503

REACTIONS (2)
  - RHEUMATOID ARTHRITIS [None]
  - ARTHROPATHY [None]
